FAERS Safety Report 8311396-2 (Version None)
Quarter: 2012Q2

REPORT INFORMATION
  Report Type: 
  Country: None (occurrence: None)
  Receive Date: 20120425
  Receipt Date: 20110616
  Transmission Date: 20120825
  Serious: No
  Sender: FDA-Public Use
  Company Number: US-MYLANLABS-2011S1012803

PATIENT
  Age: 72 Year
  Sex: Male

DRUGS (2)
  1. SYMBICORT [Concomitant]
  2. DUONEB [Suspect]
     Indication: EMPHYSEMA
     Route: 055
     Dates: start: 20110317

REACTIONS (1)
  - DECREASED APPETITE [None]
